FAERS Safety Report 8121989-3 (Version None)
Quarter: 2012Q1

REPORT INFORMATION
  Report Type: 
  Country: None (occurrence: None)
  Receive Date: 20120208
  Receipt Date: 20120202
  Transmission Date: 20120608
  Serious: Yes (Other)
  Sender: FDA-Public Use
  Company Number: IN-ROXANE LABORATORIES, INC.-2012-RO-00595RO

PATIENT
  Age: 45 Year
  Sex: Male

DRUGS (12)
  1. LONG ACTING PROPRANOLOL [Suspect]
     Dosage: 80 MG
  2. ZOLPIDEM [Suspect]
     Dosage: 20 MG
  3. ZOLPIDEM [Suspect]
     Dosage: 7.5 MG
  4. ZOLPIDEM [Suspect]
     Dosage: 20 MG
  5. LONG ACTING PROPRANOLOL [Suspect]
     Dosage: 120 MG
  6. MIRTAZAPINE [Suspect]
     Indication: SLEEP DISORDER
     Dosage: 7.5 MG
  7. LORAZEPAM [Suspect]
     Indication: ALCOHOL DETOXIFICATION
     Dosage: 8 MG
  8. ESCITALOPRAM [Suspect]
     Dosage: 20 MG
  9. ZOLPIDEM [Suspect]
     Indication: SLEEP DISORDER
     Dosage: 10 MG
  10. LONG ACTING PROPRANOLOL [Suspect]
     Indication: TREMOR
     Dosage: 40 MG
  11. ZOLPIDEM [Suspect]
     Dosage: 15 MG
  12. ZOLPIDEM [Suspect]
     Dosage: 45 MG

REACTIONS (4)
  - DRUG WITHDRAWAL SYNDROME [None]
  - DRUG INEFFECTIVE [None]
  - MEDICATION ERROR [None]
  - DELIRIUM [None]
